FAERS Safety Report 9346832 (Version 1)
Quarter: 2013Q2

REPORT INFORMATION
  Report Type: Spontaneous
  Country: FR (occurrence: FR)
  Receive Date: 20130613
  Receipt Date: 20130613
  Transmission Date: 20140414
  Serious: Yes (Hospitalization, Other)
  Sender: FDA-Public Use
  Company Number: FR-ASTRAZENECA-2013SE41095

PATIENT
  Age: 864 Month
  Sex: Male

DRUGS (5)
  1. XEROQUEL [Suspect]
     Indication: BIPOLAR DISORDER
     Route: 048
     Dates: end: 201211
  2. STELARA [Suspect]
     Indication: PSORIASIS
     Dosage: 45 MG EVERY 12 WEEKS
     Route: 058
     Dates: start: 201109, end: 201211
  3. PROPRANOLOL [Concomitant]
     Dates: end: 201211
  4. CYMBALTA [Concomitant]
     Dates: end: 201211
  5. ZOPICLONE [Concomitant]

REACTIONS (7)
  - Sigmoiditis [Unknown]
  - Abscess intestinal [Unknown]
  - Renal failure acute [Unknown]
  - Peritonitis [Unknown]
  - Enterovesical fistula [Unknown]
  - Post procedural sepsis [Unknown]
  - Psoriasis [Unknown]
